FAERS Safety Report 16819580 (Version 6)
Quarter: 2020Q1

REPORT INFORMATION
  Report Type: Report from Study
  Country: US (occurrence: US)
  Receive Date: 20190917
  Receipt Date: 20200330
  Transmission Date: 20200409
  Serious: Yes (Hospitalization, Other)
  Sender: FDA-Public Use
  Company Number: US-ACTELION-A-NJ2018-169966

PATIENT
  Age: 69 Year
  Sex: Female
  Weight: 77.1 kg

DRUGS (5)
  1. OPSUMIT [Suspect]
     Active Substance: MACITENTAN
     Indication: PULMONARY ARTERIAL HYPERTENSION
     Dosage: 10 MG, QD
     Route: 048
  2. UPTRAVI [Suspect]
     Active Substance: SELEXIPAG
     Dosage: 600 MCG, BID
     Route: 048
  3. OPSUMIT [Suspect]
     Active Substance: MACITENTAN
     Dosage: 10 MG, QD
     Route: 048
  4. UPTRAVI [Suspect]
     Active Substance: SELEXIPAG
     Dosage: 1400 MCG, BID
     Route: 048
  5. UPTRAVI [Suspect]
     Active Substance: SELEXIPAG
     Indication: PULMONARY ARTERIAL HYPERTENSION
     Dosage: 1200 MCG, BID
     Route: 048

REACTIONS (35)
  - Vomiting [Unknown]
  - Deafness unilateral [Unknown]
  - Rales [Unknown]
  - Fall [Unknown]
  - Hypoacusis [Unknown]
  - Depression [Recovering/Resolving]
  - Vertigo [Unknown]
  - Dizziness [Unknown]
  - Ear tube insertion [Unknown]
  - Rheumatoid arthritis [Unknown]
  - Restlessness [Unknown]
  - Back pain [Unknown]
  - Pain in jaw [Unknown]
  - Decreased appetite [Unknown]
  - Balance disorder [Unknown]
  - Diarrhoea [Unknown]
  - Malaise [Unknown]
  - Abdominal discomfort [Recovering/Resolving]
  - Condition aggravated [Unknown]
  - Anxiety [Recovering/Resolving]
  - Arthralgia [Unknown]
  - Dyspnoea [Unknown]
  - Musculoskeletal discomfort [Unknown]
  - Pain in extremity [Unknown]
  - Oxygen saturation decreased [Recovering/Resolving]
  - Cyanosis [Unknown]
  - Dyspnoea exertional [Unknown]
  - Abdominal pain upper [Unknown]
  - Fatigue [Unknown]
  - Oedema peripheral [Unknown]
  - Headache [Unknown]
  - Sleep disorder [Unknown]
  - Head discomfort [Unknown]
  - Crepitations [Unknown]
  - Cough [Unknown]

NARRATIVE: CASE EVENT DATE: 20190902
